FAERS Safety Report 12306189 (Version 2)
Quarter: 2016Q3

REPORT INFORMATION
  Report Type: Spontaneous
  Country: US (occurrence: US)
  Receive Date: 20160426
  Receipt Date: 20160713
  Transmission Date: 20161109
  Serious: Yes (Hospitalization, Other)
  Sender: FDA-Public Use
  Company Number: US-PFIZER INC-2016225959

PATIENT
  Age: 60 Year
  Sex: Male

DRUGS (2)
  1. DEPO-TESTOSTERONE [Suspect]
     Active Substance: TESTOSTERONE CYPIONATE
     Indication: HORMONE REPLACEMENT THERAPY
     Dosage: UNK, EVERY 10 DAYS
     Dates: start: 2011, end: 201305
  2. INSULIN [Concomitant]
     Active Substance: INSULIN NOS
     Indication: BLOOD GLUCOSE
     Dosage: UNK

REACTIONS (4)
  - Cerebrovascular accident [Unknown]
  - Balance disorder [Not Recovered/Not Resolved]
  - Diplopia [Not Recovered/Not Resolved]
  - Amnesia [Not Recovered/Not Resolved]

NARRATIVE: CASE EVENT DATE: 201305
